FAERS Safety Report 16294493 (Version 1)
Quarter: 2019Q2

REPORT INFORMATION
  Report Type: Spontaneous
  Country: US (occurrence: US)
  Receive Date: 20190509
  Receipt Date: 20190509
  Transmission Date: 20190711
  Serious: No
  Sender: FDA-Public Use
  Company Number: US-ROCHE-2096920

PATIENT
  Sex: Male

DRUGS (1)
  1. ESBRIET [Suspect]
     Active Substance: PIRFENIDONE
     Indication: IDIOPATHIC PULMONARY FIBROSIS
     Dosage: 1 CAPSULE THRICE A DAY (TID) ON DAY 1-7, 2 CAPSULE TID ON DAY 8-14 AND 3 CAPSULE TID ON DAY 15
     Route: 048
     Dates: start: 20180302

REACTIONS (4)
  - Abdominal discomfort [Unknown]
  - Cough [Unknown]
  - Nausea [Unknown]
  - Rash [Unknown]
